FAERS Safety Report 24413502 (Version 3)
Quarter: 2025Q2

REPORT INFORMATION
  Report Type: Spontaneous
  Country: GB (occurrence: GB)
  Receive Date: 20241008
  Receipt Date: 20250516
  Transmission Date: 20250716
  Serious: Yes (Life-Threatening, Hospitalization, Other)
  Sender: PFIZER
  Company Number: GB-MHRA-EMIS-4277-4ff9f952-1147-41c7-a398-8e80fb66e75c

PATIENT
  Age: 87 Year
  Sex: Male
  Weight: 75 kg

DRUGS (2)
  1. LEVETIRACETAM [Interacting]
     Active Substance: LEVETIRACETAM
     Dosage: ONE A DAY
     Dates: start: 20211001
  2. POLYETHYLENE GLYCOLS [Interacting]
     Active Substance: POLYETHYLENE GLYCOLS

REACTIONS (4)
  - Labelled drug-drug interaction medication error [Recovered/Resolved]
  - Drug ineffective [Recovered/Resolved]
  - Epilepsy [Recovered/Resolved]
  - Drug interaction [Unknown]
